FAERS Safety Report 17795715 (Version 4)
Quarter: 2021Q3

REPORT INFORMATION
  Report Type: Spontaneous
  Country: JP (occurrence: JP)
  Receive Date: 20200516
  Receipt Date: 20210901
  Transmission Date: 20211014
  Serious: Yes (Other)
  Sender: FDA-Public Use
  Company Number: JP-LUPIN PHARMACEUTICALS INC.-2020-02162

PATIENT
  Age: 48 Year
  Sex: Male

DRUGS (10)
  1. MINOCYCLINE HYDROCHLORIDE. [Interacting]
     Active Substance: MINOCYCLINE HYDROCHLORIDE
     Indication: PEMPHIGOID
     Dosage: 200 MILLIGRAM, QD
     Route: 065
  2. METHYLPREDNISOLONE SODIUM SUCCINATE. [Concomitant]
     Active Substance: METHYLPREDNISOLONE SODIUM SUCCINATE
     Indication: ADJUVANT THERAPY
     Dosage: 1000 MILLIGRAM, BID
     Route: 065
  3. MIZORIBINE [Concomitant]
     Active Substance: MIZORIBINE
     Indication: ADJUVANT THERAPY
     Dosage: 100 TO 150 MG/DAY
     Route: 065
  4. PREDNISOLONE. [Interacting]
     Active Substance: PREDNISOLONE
     Dosage: 0.70 MILLIGRAM/KILOGRAM, QD
     Route: 065
  5. PHENYTOIN SODIUM. [Suspect]
     Active Substance: PHENYTOIN SODIUM
     Indication: EPILEPSY
     Dosage: UNK
     Route: 065
  6. IMMUNOGLOBULINS NOS [Concomitant]
     Active Substance: IMMUNE GLOBULIN NOS
     Indication: ADJUVANT THERAPY
     Dosage: HIGH?DOSE; ADMINISTERED TWICE
     Route: 065
  7. BETAMETHASONE. [Interacting]
     Active Substance: BETAMETHASONE
     Indication: PEMPHIGOID
     Dosage: 1 MILLIGRAM, QD
     Route: 065
  8. PREDNISOLONE. [Interacting]
     Active Substance: PREDNISOLONE
     Indication: STEROID THERAPY
     Dosage: 40 MILLIGRAM, QD
     Route: 065
  9. PREDNISOLONE. [Interacting]
     Active Substance: PREDNISOLONE
     Indication: PEMPHIGOID
     Dosage: 1 MILLIGRAM/KILOGRAM, QD (CONDITION IMMEDIATELY RELAPSED)
     Route: 065
  10. PREDNISOLONE. [Interacting]
     Active Substance: PREDNISOLONE
     Dosage: 0.75 MILLIGRAM/KILOGRAM, QD (DOSE WAS TAPERED)
     Route: 065

REACTIONS (4)
  - Pemphigoid [Recovering/Resolving]
  - Therapeutic product effect decreased [Unknown]
  - Contraindicated product administered [Unknown]
  - Drug interaction [Unknown]
